FAERS Safety Report 9223126 (Version 2)
Quarter: 2013Q2

REPORT INFORMATION
  Report Type: Report from Study
  Country: FR (occurrence: FR)
  Receive Date: 20130410
  Receipt Date: 20130617
  Transmission Date: 20140414
  Serious: Yes (Death, Other)
  Sender: FDA-Public Use
  Company Number: FR-ROCHE-1211517

PATIENT
  Sex: 0

DRUGS (2)
  1. ALTEPLASE [Suspect]
     Indication: CEREBROVASCULAR ACCIDENT
     Dosage: DAILY DOSE: UPTO A TOTAL DOSE OF 22 MG
     Route: 042
  2. ALTEPLASE [Suspect]
     Indication: CEREBRAL ARTERY OCCLUSION
     Dosage: DAILY DOSE: UPTO A TOTAL DOSE OF 22 MG
     Route: 013

REACTIONS (2)
  - Death [Fatal]
  - Haemorrhage intracranial [Unknown]
